FAERS Safety Report 8760378 (Version 3)
Quarter: 2012Q4

REPORT INFORMATION
  Report Type: 
  Country: US (occurrence: US)
  Receive Date: 20120830
  Receipt Date: 20121023
  Transmission Date: 20130627
  Serious: No
  Sender: FDA-Public Use
  Company Number: US-009507513-1207USA011458

PATIENT
  Age: 20 Year
  Sex: Female
  Weight: 82.54 kg

DRUGS (2)
  1. IMPLANON [Suspect]
     Indication: CONTRACEPTION
     Dosage: 1 standard dose of 1
     Route: 059
     Dates: start: 20120725
  2. XANAX [Concomitant]

REACTIONS (3)
  - Product quality issue [Unknown]
  - Complication of device insertion [Unknown]
  - No adverse event [Unknown]
